FAERS Safety Report 7972591-5 (Version None)
Quarter: 2011Q4

REPORT INFORMATION
  Report Type: 
  Country: None (occurrence: None)
  Receive Date: 20111213
  Receipt Date: 20111201
  Transmission Date: 20120403
  Serious: Yes (Other)
  Sender: FDA-Public Use
  Company Number: GB-JNJFOC-20110105543

PATIENT
  Sex: Female
  Weight: 92 kg

DRUGS (5)
  1. REMICADE [Suspect]
     Route: 042
     Dates: start: 20101216
  2. REMICADE [Suspect]
     Dosage: 11TH DOSE
     Route: 042
     Dates: start: 20110111
  3. METHOTREXATE [Concomitant]
     Indication: CROHN'S DISEASE
     Route: 065
  4. REMICADE [Suspect]
     Indication: CROHN'S DISEASE
     Route: 042
     Dates: end: 20110101
  5. REMICADE [Suspect]
     Route: 042
     Dates: start: 20090616

REACTIONS (9)
  - PRURITUS [None]
  - RASH [None]
  - CHEST PAIN [None]
  - INFUSION RELATED REACTION [None]
  - TACHYCARDIA [None]
  - PALPITATIONS [None]
  - DYSPNOEA [None]
  - URTICARIA [None]
  - HOT FLUSH [None]
